FAERS Safety Report 6787594-6 (Version None)
Quarter: 2010Q2

REPORT INFORMATION
  Report Type: 
  Country: None (occurrence: None)
  Receive Date: 20100623
  Receipt Date: 20040505
  Transmission Date: 20101027
  Serious: No
  Sender: FDA-Public Use
  Company Number: US-PFIZER INC-2007058583

PATIENT
  Sex: Female

DRUGS (1)
  1. NICOTROL [Suspect]

REACTIONS (3)
  - EPISTAXIS [None]
  - ERYTHEMA [None]
  - LACRIMATION INCREASED [None]
